FAERS Safety Report 7169806-2 (Version None)
Quarter: 2010Q4

REPORT INFORMATION
  Report Type: 
  Country: None (occurrence: None)
  Receive Date: 20101214
  Receipt Date: 20101214
  Transmission Date: 20110411
  Serious: Yes (Other)
  Sender: FDA-Public Use
  Company Number: None

PATIENT
  Age: 48 Year
  Sex: Female
  Weight: 68.9467 kg

DRUGS (2)
  1. OXYCONTIN [Suspect]
     Indication: BACK PAIN
     Dosage: 80MG 3X DAILY PO
     Route: 048
     Dates: start: 20101030, end: 20101207
  2. OXYCONTIN [Suspect]
     Indication: MULTIPLE SCLEROSIS
     Dosage: 80MG 3X DAILY PO
     Route: 048
     Dates: start: 20101030, end: 20101207

REACTIONS (9)
  - ABDOMINAL PAIN UPPER [None]
  - DYSPHAGIA [None]
  - FEELING ABNORMAL [None]
  - HEADACHE [None]
  - LABORATORY TEST ABNORMAL [None]
  - MALAISE [None]
  - MOOD SWINGS [None]
  - POISONING [None]
  - PRODUCT FORMULATION ISSUE [None]
